FAERS Safety Report 8553005-3 (Version None)
Quarter: 2012Q3

REPORT INFORMATION
  Report Type: 
  Country: None (occurrence: None)
  Receive Date: 20120731
  Receipt Date: 20120723
  Transmission Date: 20120928
  Serious: Yes (Hospitalization, Other)
  Sender: FDA-Public Use
  Company Number: JP-VERTEX PHARMACEUTICALS INC.-AE-2012-003622

PATIENT
  Age: 67 Year
  Sex: Female

DRUGS (23)
  1. TELAVIC (TELAPREVIR) [Suspect]
     Route: 048
     Dates: start: 20120405, end: 20120501
  2. RIBAVIRIN [Concomitant]
     Route: 048
     Dates: start: 20120208, end: 20120220
  3. PEGINTERFERON ALFA-2A [Concomitant]
     Route: 058
     Dates: start: 20120622
  4. TELAVIC (TELAPREVIR) [Suspect]
     Route: 048
     Dates: start: 20120221, end: 20120301
  5. CLOBETASOL PROPIONATE [Concomitant]
     Route: 061
     Dates: start: 20120126
  6. RIBAVIRIN [Concomitant]
     Route: 048
     Dates: start: 20120326, end: 20120404
  7. RIBAVIRIN [Concomitant]
     Route: 048
     Dates: start: 20120420, end: 20120614
  8. RIBAVIRIN [Concomitant]
     Route: 048
     Dates: start: 20120615
  9. PEGINTERFERON ALFA-2A [Concomitant]
     Indication: HEPATITIS C
     Route: 058
     Dates: start: 20120124, end: 20120224
  10. RABEPRAZOLE SODIUM [Concomitant]
     Route: 048
     Dates: start: 20120210
  11. TELAVIC (TELAPREVIR) [Suspect]
     Route: 048
     Dates: start: 20120326, end: 20120404
  12. MOTILIUM [Concomitant]
     Route: 048
  13. TELAVIC (TELAPREVIR) [Suspect]
     Route: 048
     Dates: start: 20120131, end: 20120220
  14. RIBAVIRIN [Concomitant]
     Indication: HEPATITIS C
     Route: 048
     Dates: start: 20120124, end: 20120207
  15. VOLTAREN [Concomitant]
     Route: 054
     Dates: start: 20120124
  16. TOUGHMAC E [Concomitant]
     Route: 048
     Dates: start: 20120125
  17. MOTILIUM [Concomitant]
     Route: 048
     Dates: start: 20120223, end: 20120327
  18. TELAVIC (TELAPREVIR) [Suspect]
     Indication: HEPATITIS C
     Route: 048
     Dates: start: 20120124, end: 20120130
  19. RIBAVIRIN [Concomitant]
     Route: 048
     Dates: start: 20120221, end: 20120301
  20. RIBAVIRIN [Concomitant]
     Route: 048
     Dates: start: 20120405, end: 20120419
  21. PEGINTERFERON ALFA-2A [Concomitant]
     Route: 058
     Dates: start: 20120326, end: 20120621
  22. ALLEGRA [Concomitant]
     Route: 048
     Dates: start: 20120126
  23. MAGMITT [Concomitant]
     Route: 048
     Dates: start: 20120125

REACTIONS (2)
  - ANAEMIA [None]
  - DECREASED APPETITE [None]
